FAERS Safety Report 26038626 (Version 1)
Quarter: 2025Q4

REPORT INFORMATION
  Report Type: Report from Study
  Country: EU (occurrence: EU)
  Receive Date: 20251113
  Receipt Date: 20251113
  Transmission Date: 20260118
  Serious: Yes (Hospitalization, Disabling)
  Sender: TEVA
  Company Number: None

PATIENT
  Age: 70 Year
  Sex: Male
  Weight: 79 kg

DRUGS (16)
  1. DOCETAXEL [Suspect]
     Active Substance: DOCETAXEL
     Indication: Non-small cell lung cancer
     Dosage: DATE OF MOST RECENT DOSE PRIOR TO AE ONSET: 25/JUL/2014; DOSE-143.51 MG
     Route: 042
     Dates: start: 20140725, end: 20140725
  2. LACTOBACILLUS CASEI VAR RHAMNOSUS [Concomitant]
     Indication: Product used for unknown indication
     Dosage: DOSE: 1 DOSAGE FORM
     Route: 048
     Dates: start: 20140716, end: 20140722
  3. ATORVASTATIN [Concomitant]
     Active Substance: ATORVASTATIN
     Indication: Hyperlipidaemia
     Route: 048
     Dates: start: 2013
  4. CIPROFLOXACIN HYDROCHLORIDE [Concomitant]
     Active Substance: CIPROFLOXACIN HYDROCHLORIDE
     Indication: Product used for unknown indication
     Route: 048
     Dates: start: 20140716, end: 20140722
  5. MAGNESIUM [Concomitant]
     Active Substance: MAGNESIUM
     Indication: Product used for unknown indication
     Route: 048
  6. NEBIVOLOL [Concomitant]
     Active Substance: NEBIVOLOL
     Indication: Hypertension
     Route: 048
     Dates: start: 2005
  7. ENOXAPARIN SODIUM [Concomitant]
     Active Substance: ENOXAPARIN SODIUM
     Indication: Product used for unknown indication
     Route: 058
     Dates: start: 20131216, end: 20140707
  8. ENOXAPARIN SODIUM [Concomitant]
     Active Substance: ENOXAPARIN SODIUM
     Indication: Product used for unknown indication
     Route: 058
     Dates: start: 20140708, end: 20140806
  9. IPRATROPIUM BROMIDE [Concomitant]
     Active Substance: IPRATROPIUM BROMIDE
     Indication: Respiratory disorder
     Dosage: INHALATION
     Route: 065
     Dates: start: 2013
  10. RAMIPRIL [Concomitant]
     Active Substance: RAMIPRIL
     Indication: Hypertension
     Route: 048
     Dates: start: 2005, end: 20140805
  11. TIMONACIC [Concomitant]
     Active Substance: TIMONACIC
     Indication: Product used for unknown indication
     Route: 048
     Dates: start: 2011
  12. PENTOXIFYLLINE [Concomitant]
     Active Substance: PENTOXIFYLLINE
     Indication: Product used for unknown indication
     Route: 048
     Dates: start: 2000
  13. PANTOPRAZOLE [Concomitant]
     Active Substance: PANTOPRAZOLE
     Indication: Peptic ulcer
     Route: 048
     Dates: start: 2009, end: 20140803
  14. AMBROXOL HYDROCHLORIDE [Concomitant]
     Active Substance: AMBROXOL HYDROCHLORIDE
     Indication: Respiratory disorder
     Dosage: INHALATION
     Route: 065
     Dates: start: 20140716, end: 20140722
  15. FORMOTEROL FUMARATE [Concomitant]
     Active Substance: FORMOTEROL FUMARATE
     Indication: Respiratory disorder
     Dosage: INHALATION
     Route: 065
     Dates: start: 2013
  16. POTASSIUM [Concomitant]
     Active Substance: POTASSIUM
     Indication: Product used for unknown indication
     Route: 048

REACTIONS (2)
  - Oesophageal varices haemorrhage [Recovered/Resolved]
  - Bronchitis [Recovered/Resolved]

NARRATIVE: CASE EVENT DATE: 20140801
